FAERS Safety Report 12728311 (Version 6)
Quarter: 2020Q2

REPORT INFORMATION
  Report Type: Report from Study
  Country: US (occurrence: US)
  Receive Date: 20160909
  Receipt Date: 20200430
  Transmission Date: 20200713
  Serious: Yes (Death, Life-Threatening)
  Sender: FDA-Public Use
  Company Number: US-AMGEN-USACT2016121150

PATIENT
  Age: 63 Year
  Sex: Female
  Weight: 81.36 kg

DRUGS (10)
  1. VICODIN [Concomitant]
     Active Substance: ACETAMINOPHEN\HYDROCODONE BITARTRATE
     Dosage: 10 MILLIGRAM
     Route: 048
     Dates: start: 20160825, end: 20160903
  2. ACYCLOVIR. [Concomitant]
     Active Substance: ACYCLOVIR
     Dosage: 200 MILLIGRAM
     Route: 048
     Dates: start: 20160712, end: 20160903
  3. ASPIRIN. [Concomitant]
     Active Substance: ASPIRIN
     Dosage: 81 MILLIGRAM
     Route: 048
     Dates: start: 20160712, end: 20160903
  4. CARFILZOMIB [Suspect]
     Active Substance: CARFILZOMIB
     Indication: PLASMA CELL MYELOMA
     Dosage: 132.4 MILLIGRAM, PER CHEMO REGIM
     Route: 042
     Dates: start: 20160728, end: 20160901
  5. DEXAMETHASONE. [Suspect]
     Active Substance: DEXAMETHASONE
     Indication: PLASMA CELL MYELOMA
     Dosage: 40 MILLIGRAM, PER CHEMO REGIM
     Route: 048
     Dates: start: 20160811, end: 20160901
  6. COMPAZINE [Concomitant]
     Active Substance: PROCHLORPERAZINE MALEATE
     Dosage: 10 MILLIGRAM
     Route: 048
     Dates: start: 20160725, end: 20160903
  7. ZINC. [Concomitant]
     Active Substance: ZINC
     Dosage: 50 MILLIGRAM
     Route: 048
     Dates: start: 2013, end: 20160903
  8. LENALIDOMIDE [Suspect]
     Active Substance: LENALIDOMIDE
     Indication: PLASMA CELL MYELOMA
     Dosage: UNK MILLIGRAM, PER CHEMO REGIM
     Route: 048
     Dates: start: 20160729
  9. VITAMIN D3 [Concomitant]
     Active Substance: CHOLECALCIFEROL
     Dosage: 5000 UNK
     Route: 048
     Dates: start: 2011, end: 20160903
  10. ATIVAN [Concomitant]
     Active Substance: LORAZEPAM
     Dosage: 0.5 MILLIGRAM
     Route: 048
     Dates: start: 20160901, end: 20160903

REACTIONS (1)
  - Cardiac disorder [Fatal]

NARRATIVE: CASE EVENT DATE: 20160903
